FAERS Safety Report 10278672 (Version 1)
Quarter: 2014Q3

REPORT INFORMATION
  Report Type: Spontaneous
  Country: US (occurrence: US)
  Receive Date: 20140704
  Receipt Date: 20140704
  Transmission Date: 20150326
  Serious: No
  Sender: FDA-Public Use
  Company Number: US-ASTRAZENECA-2014SE46424

PATIENT
  Age: 78 Year
  Sex: Male
  Weight: 79.4 kg

DRUGS (6)
  1. PRAVASTATIN [Concomitant]
     Active Substance: PRAVASTATIN\PRAVASTATIN SODIUM
     Indication: BLOOD CHOLESTEROL ABNORMAL
  2. METOPROLOL SUCCINATE. [Suspect]
     Active Substance: METOPROLOL SUCCINATE
     Indication: ATRIAL FIBRILLATION
     Route: 048
  3. SULFAZINE [Concomitant]
     Active Substance: SULFASALAZINE
     Indication: ARTHRITIS
  4. METOPROLOL SUCCINATE. [Suspect]
     Active Substance: METOPROLOL SUCCINATE
     Indication: BLOOD CHOLESTEROL ABNORMAL
     Route: 048
  5. CANDASARTEN [Suspect]
     Active Substance: CANDESARTAN
     Indication: HYPERTENSION
     Dosage: IN THE MORNING
     Route: 048
  6. CANDASARTEN [Suspect]
     Active Substance: CANDESARTAN
     Indication: HYPERTENSION
     Dosage: AT NIGHT
     Route: 048

REACTIONS (3)
  - Intentional product misuse [Not Recovered/Not Resolved]
  - Off label use [Not Recovered/Not Resolved]
  - Sluggishness [Not Recovered/Not Resolved]
